FAERS Safety Report 4749033-6 (Version None)
Quarter: 2005Q3

REPORT INFORMATION
  Report Type: 
  Country: None (occurrence: None)
  Receive Date: 20050819
  Receipt Date: 20050810
  Transmission Date: 20060218
  Serious: Yes (Congenital Anomaly)
  Sender: FDA-Public Use
  Company Number: US-JNJFOC-20050803109

PATIENT
  Sex: Male
  Weight: 2.61 kg

DRUGS (5)
  1. TOPAMAX [Suspect]
     Indication: MATERNAL DRUGS AFFECTING FOETUS
  2. NEURONTIN [Concomitant]
  3. DOXAPIN [Concomitant]
     Indication: DRUG USE FOR UNKNOWN INDICATION
  4. PERCOCET [Concomitant]
  5. PERCOCET [Concomitant]
     Indication: DRUG USE FOR UNKNOWN INDICATION

REACTIONS (4)
  - CARDIAC ANEURYSM [None]
  - HEAD DEFORMITY [None]
  - JAUNDICE NEONATAL [None]
  - VENTRICULAR SEPTAL DEFECT [None]
